FAERS Safety Report 4803672-2 (Version None)
Quarter: 2005Q4

REPORT INFORMATION
  Report Type: 
  Country: None (occurrence: None)
  Receive Date: 20051014
  Receipt Date: 20051004
  Transmission Date: 20060501
  Serious: Yes (Hospitalization, Other)
  Sender: FDA-Public Use
  Company Number: 2005-03756

PATIENT
  Age: 48 Year
  Sex: Male

DRUGS (1)
  1. NORTRIPTYLINE HYDROCHLORIDE(WATSON LABORATORIES)(NORTRIPTYLINE HYDROCH [Suspect]
     Dosage: ORAL
     Route: 048

REACTIONS (2)
  - BRUGADA SYNDROME [None]
  - MULTIPLE DRUG OVERDOSE [None]
